FAERS Safety Report 4874475-8 (Version None)
Quarter: 2006Q1

REPORT INFORMATION
  Report Type: 
  Country: None (occurrence: None)
  Receive Date: 20060106
  Receipt Date: 20051227
  Transmission Date: 20060701
  Serious: Yes (Hospitalization)
  Sender: FDA-Public Use
  Company Number: GB-ROCHE-430371

PATIENT
  Age: 57 Year
  Sex: Female
  Weight: 112 kg

DRUGS (1)
  1. XENICAL [Suspect]
     Indication: OBESITY
     Route: 065

REACTIONS (6)
  - ELECTROENCEPHALOGRAM ABNORMAL [None]
  - HEPATIC ENCEPHALOPATHY [None]
  - HEPATIC FAILURE [None]
  - HEPATIC NECROSIS [None]
  - HEPATITIS ACUTE [None]
  - LIVER TRANSPLANT [None]
